FAERS Safety Report 24031318 (Version 2)
Quarter: 2024Q3

REPORT INFORMATION
  Report Type: Spontaneous
  Country: FR (occurrence: FR)
  Receive Date: 20240629
  Receipt Date: 20240913
  Transmission Date: 20241016
  Serious: Yes (Hospitalization, Other)
  Sender: BRISTOL MYERS SQUIBB
  Company Number: FR-BRISTOL-MYERS SQUIBB COMPANY-2024-101202

PATIENT
  Age: 4 Year
  Sex: Female

DRUGS (3)
  1. REPOTRECTINIB [Suspect]
     Active Substance: REPOTRECTINIB
     Indication: Congenital fibrosarcoma
     Route: 048
     Dates: start: 20230823, end: 20240403
  2. REPOTRECTINIB [Suspect]
     Active Substance: REPOTRECTINIB
     Route: 048
     Dates: start: 20240421, end: 20240430
  3. ENALAPRIL [Concomitant]
     Active Substance: ENALAPRIL
     Indication: Product used for unknown indication
     Dosage: PER DAY

REACTIONS (3)
  - Hypertensive encephalopathy [Recovered/Resolved with Sequelae]
  - Hyperadrenocorticism [Recovered/Resolved with Sequelae]
  - Speech disorder developmental [Unknown]

NARRATIVE: CASE EVENT DATE: 20240403
